FAERS Safety Report 7113559-0 (Version None)
Quarter: 2010Q4

REPORT INFORMATION
  Report Type: 
  Country: None (occurrence: None)
  Receive Date: 20101119
  Receipt Date: 20101111
  Transmission Date: 20110411
  Serious: Yes (Death, Hospitalization)
  Sender: FDA-Public Use
  Company Number: JP-SANOFI-AVENTIS-A01200904901

PATIENT
  Age: 70 Year
  Sex: Male

DRUGS (8)
  1. CLOPIDOGREL BISULFATE [Suspect]
     Route: 048
     Dates: start: 20080409, end: 20080612
  2. DIOVAN [Concomitant]
     Indication: HYPERTENSION
     Route: 048
     Dates: start: 19980101, end: 20080616
  3. AMLODIPINE BESYLATE [Concomitant]
     Indication: HYPERTENSION
     Route: 048
     Dates: start: 19980101, end: 20080616
  4. TAMSULOSIN HCL [Concomitant]
     Route: 048
     Dates: start: 20030101, end: 20080616
  5. 8-HOUR BAYER [Concomitant]
     Indication: TRANSIENT ISCHAEMIC ATTACK
     Route: 048
     Dates: start: 20050101, end: 20080616
  6. 8-HOUR BAYER [Concomitant]
     Indication: CEREBRAL INFARCTION
     Route: 048
     Dates: start: 20050101, end: 20080616
  7. LOXONIN [Concomitant]
     Route: 048
     Dates: end: 20080616
  8. PIOGLITAZONE HCL [Concomitant]
     Indication: DIABETES MELLITUS
     Route: 048
     Dates: start: 20070101, end: 20080616

REACTIONS (15)
  - C-REACTIVE PROTEIN INCREASED [None]
  - DRUG RASH WITH EOSINOPHILIA AND SYSTEMIC SYMPTOMS [None]
  - EOSINOPHILIA [None]
  - HUMAN HERPESVIRUS 6 INFECTION [None]
  - LEUKOCYTOSIS [None]
  - OFF LABEL USE [None]
  - PNEUMONIA CYTOMEGALOVIRAL [None]
  - PURPURA [None]
  - PYOTHORAX [None]
  - PYREXIA [None]
  - RASH GENERALISED [None]
  - RASH PRURITIC [None]
  - RENAL IMPAIRMENT [None]
  - SEPSIS [None]
  - STAPHYLOCOCCAL SEPSIS [None]
